FAERS Safety Report 8304313-2 (Version None)
Quarter: 2012Q2

REPORT INFORMATION
  Report Type: 
  Country: None (occurrence: None)
  Receive Date: 20120423
  Receipt Date: 20120423
  Transmission Date: 20120825
  Serious: Yes (Other)
  Sender: FDA-Public Use
  Company Number: None

PATIENT
  Age: 34 Year
  Sex: Female
  Weight: 63.502 kg

DRUGS (2)
  1. DOMPERIDONE [Suspect]
     Indication: LACTATION DISORDER
     Dosage: 30MG
     Route: 048
  2. DOMPERIDONE [Concomitant]

REACTIONS (4)
  - PALPITATIONS [None]
  - DYSPNOEA [None]
  - MOVEMENT DISORDER [None]
  - ARRHYTHMIA [None]
